FAERS Safety Report 6753600-8 (Version None)
Quarter: 2010Q2

REPORT INFORMATION
  Report Type: 
  Country: None (occurrence: None)
  Receive Date: 20100601
  Receipt Date: 20100525
  Transmission Date: 20101027
  Serious: Yes (Death)
  Sender: FDA-Public Use
  Company Number: 20097567

PATIENT
  Sex: Female

DRUGS (1)
  1. LIORESAL [Suspect]
     Indication: MUSCLE SPASTICITY
     Dosage: , MCG, DAILY, INTRATHECAL
     Route: 037

REACTIONS (9)
  - ANOXIC ENCEPHALOPATHY [None]
  - DEVICE RELATED INFECTION [None]
  - HAEMATOMA [None]
  - IMPLANT SITE EFFUSION [None]
  - IMPLANT SITE SWELLING [None]
  - TREATMENT NONCOMPLIANCE [None]
  - WOUND DEHISCENCE [None]
  - WOUND INFECTION [None]
  - WOUND SECRETION [None]
